FAERS Safety Report 10220838 (Version 1)
Quarter: 2014Q1

REPORT INFORMATION
  Report Type: Spontaneous
  Country: US (occurrence: None)
  Receive Date: 20140306
  Receipt Date: 20140306
  Transmission Date: 20141002
  Serious: Yes (Hospitalization)
  Sender: FDA-Public Use
  Company Number: 163-21880-13094598

PATIENT
  Age: 86 Year
  Sex: Male

DRUGS (2)
  1. REVLIMID (LENALIDOMIDE) (CAPSULES) [Suspect]
     Indication: 5Q MINUS SYNDROME
     Dosage: 5 MG, 21 IN 21 D, PO?3/28/2013 - TEMPORARILY INTERRUPTED
     Route: 048
     Dates: start: 20130328
  2. VICODIN (VICODIN) [Concomitant]

REACTIONS (2)
  - Infection [None]
  - Drug ineffective [None]
